FAERS Safety Report 16053692 (Version 1)
Quarter: 2019Q1

REPORT INFORMATION
  Report Type: Spontaneous
  Country: CN (occurrence: CN)
  Receive Date: 20190308
  Receipt Date: 20190308
  Transmission Date: 20190418
  Serious: Yes (Life-Threatening, Hospitalization, Other)
  Sender: FDA-Public Use
  Company Number: CN-BAYER-2019-042406

PATIENT
  Age: 49 Year
  Sex: Male
  Weight: 60 kg

DRUGS (3)
  1. ROSIGLITAZONE [Suspect]
     Active Substance: ROSIGLITAZONE
     Indication: DIABETES MELLITUS
     Dosage: 4 MG, QD
     Route: 048
     Dates: start: 20181218, end: 20181230
  2. GLUCOBAY [Suspect]
     Active Substance: ACARBOSE
     Indication: DIABETES MELLITUS
     Dosage: 0.1 G, TID
  3. REPAGLINIDE. [Suspect]
     Active Substance: REPAGLINIDE
     Indication: DIABETES MELLITUS
     Dosage: 4 MG, BID
     Route: 048
     Dates: start: 20181218, end: 20181230

REACTIONS (2)
  - Hypoglycaemic coma [Recovering/Resolving]
  - Hyperhidrosis [Recovering/Resolving]

NARRATIVE: CASE EVENT DATE: 20181230
